FAERS Safety Report 5151928-9 (Version None)
Quarter: 2006Q4

REPORT INFORMATION
  Report Type: 
  Country: None (occurrence: None)
  Receive Date: 20061106
  Receipt Date: 20061023
  Transmission Date: 20070319
  Serious: Yes (Hospitalization, Other)
  Sender: FDA-Public Use
  Company Number: 200610823BFR

PATIENT
  Age: 20 Month
  Sex: Male
  Weight: 12 kg

DRUGS (23)
  1. HELIXATE [Suspect]
     Indication: FACTOR VIII DEFICIENCY
     Dosage: QD INTRAVENOUS
     Route: 042
     Dates: start: 20041212, end: 20041214
  2. HELIXATE [Suspect]
     Indication: HAEMORRHAGE
     Dosage: QD INTRAVENOUS
     Route: 042
     Dates: start: 20041212, end: 20041214
  3. HELIXATE [Suspect]
     Indication: FACTOR VIII DEFICIENCY
     Dosage: QD INTRAVENOUS
     Route: 042
     Dates: start: 20050525
  4. HELIXATE [Suspect]
     Indication: HAEMORRHAGE
     Dosage: QD INTRAVENOUS
     Route: 042
     Dates: start: 20050525
  5. HELIXATE [Suspect]
     Dates: start: 20050601, end: 20050602
  6. HELIXATE [Suspect]
     Dates: start: 20050608, end: 20050622
  7. HELIXATE [Suspect]
     Dates: start: 20050318
  8. HELIXATE [Suspect]
     Dates: start: 20050419
  9. HELIXATE [Suspect]
     Dates: start: 20050628
  10. HELIXATE [Suspect]
     Indication: PROPHYLAXIS
     Dates: start: 20050705, end: 20050706
  11. HELIXATE [Suspect]
     Indication: PROPHYLAXIS
     Dates: start: 20050708, end: 20050709
  12. HELIXATE [Suspect]
     Indication: PROPHYLAXIS
     Dates: start: 20050702
  13. HELIXATE [Suspect]
     Indication: PROPHYLAXIS
     Dates: start: 20050707
  14. HELIXATE [Suspect]
     Indication: PROPHYLAXIS
     Dates: start: 20050713
  15. HELIXATE [Suspect]
     Indication: PROPHYLAXIS
     Dates: start: 20050714
  16. HELIXATE [Suspect]
     Dates: start: 20050703, end: 20050704
  17. HELIXATE [Suspect]
     Dates: start: 20050705, end: 20050706
  18. HELIXATE [Suspect]
     Dates: start: 20050707
  19. HELIXATE [Suspect]
     Dates: start: 20050708
  20. HELIXATE [Suspect]
     Dates: start: 20050709
  21. HELIXATE [Suspect]
     Dates: start: 20050714
  22. HELIXATE [Suspect]
     Dates: start: 20050709
  23. HELIXATE [Suspect]
     Dates: start: 20050713

REACTIONS (1)
  - FACTOR VIII INHIBITION [None]
